FAERS Safety Report 16068412 (Version 5)
Quarter: 2019Q3

REPORT INFORMATION
  Report Type: Report from Study
  Country: US (occurrence: US)
  Receive Date: 20190313
  Receipt Date: 20190724
  Transmission Date: 20191004
  Serious: Yes (Hospitalization, Other)
  Sender: FDA-Public Use
  Company Number: US-ACTELION-A-NJ2019-185032

PATIENT
  Age: 65 Year
  Sex: Female

DRUGS (1)
  1. OPSUMIT [Suspect]
     Active Substance: MACITENTAN
     Indication: PRODUCT USED FOR UNKNOWN INDICATION
     Dosage: 10 MG, QD
     Route: 048

REACTIONS (8)
  - Sinusitis [Not Recovered/Not Resolved]
  - Product dose omission [Unknown]
  - Oxygen saturation decreased [Unknown]
  - Fall [Unknown]
  - Peripheral swelling [Unknown]
  - Oedema [Not Recovered/Not Resolved]
  - Hypertension [Recovered/Resolved]
  - Hypotension [Unknown]

NARRATIVE: CASE EVENT DATE: 201901
